FAERS Safety Report 8906003 (Version 1)
Quarter: 2012Q4

REPORT INFORMATION
  Report Type: 
  Country: DE (occurrence: DE)
  Receive Date: 20121113
  Receipt Date: 20121113
  Transmission Date: 20130627
  Serious: Yes (Other)
  Sender: FDA-Public Use
  Company Number: DE-PFIZER INC-2012277058

PATIENT
  Age: 35 Year
  Sex: Female

DRUGS (2)
  1. XALATAN [Suspect]
     Dosage: UNK
  2. CORTISONE [Concomitant]
     Dosage: UNK
     Route: 061

REACTIONS (1)
  - Blood growth hormone increased [Unknown]
